FAERS Safety Report 10227910 (Version 2)
Quarter: 2014Q2

REPORT INFORMATION
  Report Type: Report from Study
  Country: US (occurrence: US)
  Receive Date: 20140610
  Receipt Date: 20140610
  Transmission Date: 20141212
  Serious: Yes (Hospitalization, Other)
  Sender: FDA-Public Use
  Company Number: US-ROCHE-1379439

PATIENT
  Age: 41 Year
  Sex: Female
  Weight: 111.68 kg

DRUGS (10)
  1. ACTEMRA [Suspect]
     Indication: RHEUMATOID ARTHRITIS
     Route: 042
     Dates: start: 20140220
  2. ACTEMRA [Suspect]
     Route: 042
     Dates: start: 20140320
  3. ACTEMRA [Suspect]
     Dosage: 901.8MG
     Route: 042
     Dates: start: 20140417
  4. ACTEMRA [Suspect]
     Dosage: 894.5 MG
     Route: 042
     Dates: start: 20140515
  5. METHOTREXATE [Concomitant]
     Indication: RHEUMATOID ARTHRITIS
     Route: 058
  6. RIFAMPIN [Concomitant]
  7. FUROSEMIDE [Concomitant]
  8. LOSARTAN [Concomitant]
  9. BENADRYL (UNITED STATES) [Concomitant]
     Dosage: AT THE TIME OF INFUSION ONLY
     Route: 065
  10. NABUMETONE [Concomitant]

REACTIONS (7)
  - Helicobacter infection [Not Recovered/Not Resolved]
  - Blister [Not Recovered/Not Resolved]
  - Oropharyngeal pain [Recovered/Resolved]
  - Fatigue [Recovered/Resolved]
  - Nausea [Recovered/Resolved]
  - Vomiting [Recovered/Resolved]
  - Drug dose omission [Unknown]
